FAERS Safety Report 6907263-9 (Version None)
Quarter: 2010Q3

REPORT INFORMATION
  Report Type: 
  Country: None (occurrence: None)
  Receive Date: 20100730
  Receipt Date: 20100719
  Transmission Date: 20110219
  Serious: Yes (Other)
  Sender: FDA-Public Use
  Company Number: 7011623

PATIENT
  Age: 60 Year
  Sex: Female

DRUGS (2)
  1. REBIF [Suspect]
     Indication: MULTIPLE SCLEROSIS
     Dosage: 44 MCG, 3 IN 1 WK, SUBCUTANEOUS
     Route: 058
     Dates: start: 20100330
  2. METHOTREXATE [Concomitant]

REACTIONS (5)
  - CHILLS [None]
  - EXCORIATION [None]
  - INJECTION SITE REACTION [None]
  - PSORIASIS [None]
  - PYREXIA [None]
